FAERS Safety Report 9855180 (Version 4)
Quarter: 2021Q2

REPORT INFORMATION
  Report Type: Other
  Country: US (occurrence: US)
  Receive Date: 20140130
  Receipt Date: 20210611
  Transmission Date: 20210717
  Serious: Yes (Other)
  Sender: FDA-Public Use
  Company Number: US-ROCHE-1337285

PATIENT

DRUGS (3)
  1. DEXAMETHASONE. [Suspect]
     Active Substance: DEXAMETHASONE
     Indication: B-CELL LYMPHOMA RECURRENT
     Dosage: FOR TWO 28 DAYS CYCLES
     Route: 048
  2. RITUXIMAB. [Suspect]
     Active Substance: RITUXIMAB
     Indication: B-CELL LYMPHOMA RECURRENT
     Dosage: FOR 4 WEEKS
     Route: 042
  3. LENALIDOMIDE [Suspect]
     Active Substance: LENALIDOMIDE
     Indication: B-CELL LYMPHOMA RECURRENT
     Dosage: DAILY
     Route: 048

REACTIONS (18)
  - Tumour flare [Unknown]
  - Pulmonary embolism [Unknown]
  - Acute myeloid leukaemia [Unknown]
  - Nausea [Unknown]
  - Hyperuricaemia [Unknown]
  - Leukopenia [Unknown]
  - Thrombocytopenia [Unknown]
  - Transaminases increased [Unknown]
  - Pneumonia [Unknown]
  - Pneumonitis [Unknown]
  - Rash [Unknown]
  - Abdominal pain [Unknown]
  - Neutropenia [Unknown]
  - Hypokalaemia [Unknown]
  - Anaemia [Unknown]
  - Hypophosphataemia [Unknown]
  - Diarrhoea [Unknown]
  - Fatigue [Unknown]
